FAERS Safety Report 13423174 (Version 3)
Quarter: 2017Q2

REPORT INFORMATION
  Report Type: Spontaneous
  Country: US (occurrence: US)
  Receive Date: 20170410
  Receipt Date: 20170511
  Transmission Date: 20170830
  Serious: No
  Sender: FDA-Public Use
  Company Number: US-009507513-1704USA003271

PATIENT
  Age: 23 Year
  Sex: Female
  Weight: 136.51 kg

DRUGS (2)
  1. NEXPLANON [Suspect]
     Active Substance: ETONOGESTREL
     Indication: CONTRACEPTION
     Dosage: UNK
     Route: 059
     Dates: start: 2014, end: 20170405
  2. NEXPLANON [Suspect]
     Active Substance: ETONOGESTREL
     Dosage: UNK
     Route: 059
     Dates: start: 20170405

REACTIONS (2)
  - Device breakage [Recovered/Resolved]
  - Fibrosis [Unknown]

NARRATIVE: CASE EVENT DATE: 20170405
